FAERS Safety Report 19589854 (Version 2)
Quarter: 2021Q4

REPORT INFORMATION
  Report Type: Spontaneous
  Country: US (occurrence: US)
  Receive Date: 20210721
  Receipt Date: 20211029
  Transmission Date: 20220303
  Serious: No
  Sender: FDA-Public Use
  Company Number: US-IGSA-BIG0014912

PATIENT
  Age: 19 Year
  Sex: Female
  Weight: 54.33 kg

DRUGS (28)
  1. XEMBIFY [Suspect]
     Active Substance: HUMAN IMMUNOGLOBULIN G
     Indication: Immunodeficiency common variable
     Dosage: 8 GRAM, Q.WK.
     Route: 058
     Dates: start: 20210131
  2. XEMBIFY [Suspect]
     Active Substance: HUMAN IMMUNOGLOBULIN G
     Dosage: 8 GRAM, Q.WK.
     Route: 058
     Dates: start: 20210328
  3. XEMBIFY [Suspect]
     Active Substance: HUMAN IMMUNOGLOBULIN G
     Dosage: 8 GRAM, Q.WK.
     Route: 058
     Dates: start: 20210404
  4. XEMBIFY [Suspect]
     Active Substance: HUMAN IMMUNOGLOBULIN G
     Dosage: 8 GRAM, Q.WK.
     Route: 058
     Dates: start: 20210411
  5. XEMBIFY [Suspect]
     Active Substance: HUMAN IMMUNOGLOBULIN G
     Dosage: 8 GRAM, Q.WK.
     Route: 058
     Dates: start: 20210418
  6. XEMBIFY [Suspect]
     Active Substance: HUMAN IMMUNOGLOBULIN G
     Dosage: 8 GRAM, Q.WK.
     Route: 058
     Dates: start: 20210425
  7. XEMBIFY [Suspect]
     Active Substance: HUMAN IMMUNOGLOBULIN G
     Dosage: 8 GRAM, Q.WK.
     Route: 058
     Dates: start: 20210502
  8. XEMBIFY [Suspect]
     Active Substance: HUMAN IMMUNOGLOBULIN G
     Dosage: 8 GRAM, Q.WK.
     Route: 058
     Dates: start: 20210509
  9. XEMBIFY [Suspect]
     Active Substance: HUMAN IMMUNOGLOBULIN G
     Dosage: 8 GRAM, Q.WK.
     Route: 058
     Dates: start: 20210516, end: 202105
  10. BENADRYL [Concomitant]
     Active Substance: DIPHENHYDRAMINE HYDROCHLORIDE
     Indication: Premedication
     Dosage: 25-50 MG
  11. ALEVE [Concomitant]
     Active Substance: NAPROXEN SODIUM
     Indication: Premedication
     Dosage: UNK
  12. ZYRTEC [Concomitant]
     Active Substance: CETIRIZINE HYDROCHLORIDE
     Indication: Premedication
  13. ALBUTEROL SULFATE [Concomitant]
     Active Substance: ALBUTEROL SULFATE
     Dosage: 1 VIAL PER NEBULIZER EVERY 4-6 HOURS, PRN
  14. AZELASTINE HYDROCHLORIDE [Concomitant]
     Active Substance: AZELASTINE HYDROCHLORIDE
     Dosage: 2 SPRAYS EACH NOSTRIL, BID
     Route: 045
  15. COMBIVENT RESPIMAT [Concomitant]
     Active Substance: ALBUTEROL SULFATE\IPRATROPIUM BROMIDE
     Indication: Dyspnoea
     Dosage: 1 PUFF BY MOUTH EVERY 4?6 HOURS
     Route: 048
  16. FLUTICASONE PROPIONATE [Concomitant]
     Active Substance: FLUTICASONE PROPIONATE
     Dosage: 1?2 SPRAYS EACH NOSTRIL, QD
     Route: 045
  17. IPRATROPIUM BROMIDE [Concomitant]
     Active Substance: IPRATROPIUM BROMIDE
     Dosage: NEBULIZER EVERY 4 HRS, PRN
  18. PROAIR HFA [Concomitant]
     Active Substance: ALBUTEROL SULFATE
     Indication: Cough
     Dosage: 2 INHALATIONS Q4?5 HRS, PRN
  19. PULMICORT FLEXHALER [Concomitant]
     Active Substance: BUDESONIDE
     Indication: Asthma
     Dosage: 2?4 INHALATIONS, BID
  20. MONTELUKAST SODIUM [Concomitant]
     Active Substance: MONTELUKAST SODIUM
     Dosage: 1 TABLET IN THE EVENING
  21. LANSOPRAZOLE [Concomitant]
     Active Substance: LANSOPRAZOLE
     Dosage: 30 MILLIGRAM, QD/ 1 CAP BEFORE BREAKFAST
     Route: 048
  22. WELLBUTRIN [Concomitant]
     Active Substance: BUPROPION HYDROCHLORIDE
     Dosage: 300 MILLIGRAM
     Route: 048
  23. DICYCLOMINE HYDROCHLORIDE [Concomitant]
     Active Substance: DICYCLOMINE HYDROCHLORIDE
     Dosage: 40 MILLIGRAM, TID
     Route: 048
  24. VERAPAMIL HCL [Concomitant]
     Active Substance: VERAPAMIL HYDROCHLORIDE
     Dosage: 240 MILLIGRAM, QD
  25. BREO ELLIPTA [Concomitant]
     Active Substance: FLUTICASONE FUROATE\VILANTEROL TRIFENATATE
     Dosage: 200?25 MCG/INH, 1 PUFF QD
  26. REGLAN [Concomitant]
     Active Substance: METOCLOPRAMIDE HYDROCHLORIDE
     Dosage: 10 MILLIGRAM, TID
     Route: 048
  27. CYPROHEPTADINE HYDROCHLORIDE [Concomitant]
     Active Substance: CYPROHEPTADINE HYDROCHLORIDE
     Dosage: 4 MILLIGRAM, BID
     Route: 048
  28. EMGALITY [Concomitant]
     Active Substance: GALCANEZUMAB-GNLM
     Dosage: UNK
     Dates: start: 202104

REACTIONS (5)
  - Infusion site bruising [Recovering/Resolving]
  - Infusion site erythema [Recovering/Resolving]
  - Infusion site pain [Recovering/Resolving]
  - Infusion site pruritus [Recovering/Resolving]
  - Infusion site nodule [Recovering/Resolving]

NARRATIVE: CASE EVENT DATE: 20210321
